FAERS Safety Report 7980051-0 (Version None)
Quarter: 2011Q4

REPORT INFORMATION
  Report Type: 
  Country: None (occurrence: None)
  Receive Date: 20111208
  Receipt Date: 20111129
  Transmission Date: 20120403
  Serious: Yes (Hospitalization, Other)
  Sender: FDA-Public Use
  Company Number: 2010SP028437

PATIENT
  Age: 20 Year
  Sex: Female
  Weight: 99.7913 kg

DRUGS (2)
  1. NUVARING [Suspect]
     Indication: VAGINAL HAEMORRHAGE
     Dates: start: 20030101, end: 20061101
  2. NUVARING [Suspect]
     Indication: CONTRACEPTION
     Dates: start: 20030101, end: 20061101

REACTIONS (42)
  - PULMONARY EMBOLISM [None]
  - MUSCULOSKELETAL PAIN [None]
  - URINARY TRACT INFECTION [None]
  - HYPEREMESIS GRAVIDARUM [None]
  - VAGINAL INFECTION [None]
  - CERVICITIS [None]
  - BLIGHTED OVUM [None]
  - DRUG ABUSE [None]
  - IMPAIRED WORK ABILITY [None]
  - HYPERCOAGULATION [None]
  - PURULENT DISCHARGE [None]
  - CAESAREAN SECTION [None]
  - ACNE [None]
  - BACK PAIN [None]
  - MALAISE [None]
  - HAEMORRHAGIC OVARIAN CYST [None]
  - CHLAMYDIA TEST POSITIVE [None]
  - ABDOMINAL PAIN LOWER [None]
  - ARTHRALGIA [None]
  - HYPOKALAEMIA [None]
  - ABORTION SPONTANEOUS [None]
  - BACTERIAL INFECTION [None]
  - GONORRHOEA [None]
  - CYSTITIS [None]
  - TREATMENT NONCOMPLIANCE [None]
  - INCISION SITE COMPLICATION [None]
  - INCISION SITE INFECTION [None]
  - ROAD TRAFFIC ACCIDENT [None]
  - ASTHENIA [None]
  - COAGULOPATHY [None]
  - MOUTH ULCERATION [None]
  - UPPER RESPIRATORY TRACT INFECTION [None]
  - SKIN CANDIDA [None]
  - POLYMENORRHOEA [None]
  - CERVICAL DYSPLASIA [None]
  - IMPAIRED HEALING [None]
  - PREGNANCY [None]
  - ANXIETY [None]
  - DEEP VEIN THROMBOSIS [None]
  - SMEAR CERVIX ABNORMAL [None]
  - SKIN MACERATION [None]
  - INFLUENZA [None]
